FAERS Safety Report 5523877-5 (Version None)
Quarter: 2007Q4

REPORT INFORMATION
  Report Type: 
  Country: None (occurrence: None)
  Receive Date: 20071121
  Receipt Date: 20071109
  Transmission Date: 20080405
  Serious: Yes (Hospitalization, Other)
  Sender: FDA-Public Use
  Company Number: US-SHR-US-2007-032138

PATIENT
  Age: 47 Year
  Sex: Female
  Weight: 64.853 kg

DRUGS (6)
  1. BETASERON [Suspect]
     Indication: RELAPSING-REMITTING MULTIPLE SCLEROSIS
     Route: 058
     Dates: start: 20020103
  2. BETASERON [Suspect]
     Dosage: 8 MIU, EVERY 2D
     Route: 058
     Dates: start: 20040101, end: 20070902
  3. BETASERON [Suspect]
     Route: 058
     Dates: start: 20070101
  4. PROZAC [Concomitant]
     Dosage: 40 MG, UNK
  5. PROVIGIL [Concomitant]
     Dosage: 100 MG, UNK
  6. ABILIFY [Concomitant]
     Dosage: 10 MG, UNK

REACTIONS (2)
  - MULTIPLE SCLEROSIS [None]
  - TRANSIENT ISCHAEMIC ATTACK [None]
